FAERS Safety Report 22325395 (Version 1)
Quarter: 2023Q2

REPORT INFORMATION
  Report Type: Report from Study
  Country: CN (occurrence: CN)
  Receive Date: 20230516
  Receipt Date: 20230516
  Transmission Date: 20230721
  Serious: Yes (Hospitalization)
  Sender: FDA-Public Use
  Company Number: CN-Merck Healthcare KGaA-9401070

PATIENT
  Age: 60 Year
  Sex: Female

DRUGS (7)
  1. CETUXIMAB [Suspect]
     Active Substance: CETUXIMAB
     Indication: Colon cancer metastatic
     Dosage: UNK UNK, UNKNOWN
     Route: 065
     Dates: start: 20210323
  2. FLUOROURACIL [Concomitant]
     Active Substance: FLUOROURACIL
     Indication: Colon cancer metastatic
     Dosage: ONE CYCLE
     Dates: start: 20210228
  3. FLUOROURACIL [Concomitant]
     Active Substance: FLUOROURACIL
     Dosage: ONE CYCLE
     Dates: start: 20210323
  4. LEUCOVORIN CALCIUM [Concomitant]
     Active Substance: LEUCOVORIN CALCIUM
     Indication: Colon cancer metastatic
     Dosage: ONE CYCLE
     Dates: start: 20210228
  5. LEUCOVORIN CALCIUM [Concomitant]
     Active Substance: LEUCOVORIN CALCIUM
     Dosage: ONE CYCLE
     Dates: start: 20210323
  6. IRINOTECAN HYDROCHLORIDE [Concomitant]
     Active Substance: IRINOTECAN HYDROCHLORIDE
     Indication: Colon cancer metastatic
     Dosage: ONE CYCLE
     Dates: start: 20210228
  7. IRINOTECAN HYDROCHLORIDE [Concomitant]
     Active Substance: IRINOTECAN HYDROCHLORIDE
     Dosage: ONE CYCLE
     Dates: start: 20210323

REACTIONS (5)
  - Dizziness [Unknown]
  - Discomfort [Unknown]
  - Memory impairment [Unknown]
  - Weight decreased [Unknown]
  - Headache [Unknown]
